FAERS Safety Report 20916067 (Version 1)
Quarter: 2022Q2

REPORT INFORMATION
  Report Type: Spontaneous
  Country: US (occurrence: US)
  Receive Date: 20220604
  Receipt Date: 20220604
  Transmission Date: 20220720
  Serious: No
  Sender: FDA-Public Use
  Company Number: US-SA-SAC20220601001665

PATIENT
  Sex: Male
  Weight: 22.1 kg

DRUGS (3)
  1. DUPIXENT [Suspect]
     Active Substance: DUPILUMAB
     Indication: Dermatitis allergic
     Dosage: 300 MG, Q4W
  2. LACTULOSE [Concomitant]
     Active Substance: LACTULOSE
  3. BROMPHENIRAMINE [Concomitant]
     Active Substance: BROMPHENIRAMINE

REACTIONS (3)
  - Eye injury [Unknown]
  - Eye swelling [Unknown]
  - Product use in unapproved indication [Unknown]
